FAERS Safety Report 5625783-4 (Version None)
Quarter: 2008Q1

REPORT INFORMATION
  Report Type: 
  Country: None (occurrence: None)
  Receive Date: 20080213
  Receipt Date: 20080213
  Transmission Date: 20080703
  Serious: Yes (Life-Threatening)
  Sender: FDA-Public Use
  Company Number: None

PATIENT
  Sex: Female
  Weight: 68.0396 kg

DRUGS (3)
  1. LEVAQUIN [Suspect]
     Indication: SINUSITIS
     Dosage: 750 MG 1 PER DAY ORAL
     Route: 048
     Dates: start: 20080128, end: 20080201
  2. METHYLPREDNISOLONE 4MG TAB [Suspect]
     Dosage: 4 MG STAGGERED DOSE ORAL
     Route: 048
     Dates: start: 20080128, end: 20080201
  3. GUAIFENEX PSE [Concomitant]

REACTIONS (3)
  - ASTHENIA [None]
  - DYSPNOEA [None]
  - PARAESTHESIA [None]
